FAERS Safety Report 4493092-5 (Version None)
Quarter: 2004Q4

REPORT INFORMATION
  Report Type: 
  Country: None (occurrence: None)
  Receive Date: 20041101
  Receipt Date: 20041014
  Transmission Date: 20050328
  Serious: Yes (Hospitalization)
  Sender: FDA-Public Use
  Company Number: DSA_25214_2004

PATIENT
  Age: 38 Year
  Sex: Male
  Weight: 53 kg

DRUGS (7)
  1. LORAZEPAM [Suspect]
     Indication: INTERMITTENT EXPLOSIVE DISORDER
     Dosage: 4 MG Q DAY PO
     Route: 048
     Dates: start: 20020101, end: 20021111
  2. LORAZEPAM [Suspect]
     Indication: INTERMITTENT EXPLOSIVE DISORDER
     Dosage: 1 MG Q DAY PO
     Route: 048
     Dates: start: 20021112
  3. AKINETON [Suspect]
     Indication: INTERMITTENT EXPLOSIVE DISORDER
     Dosage: 3 MG Q DAY PO
     Route: 048
     Dates: end: 20021111
  4. BENZALIN [Suspect]
     Indication: INTERMITTENT EXPLOSIVE DISORDER
     Dosage: 10 MG Q DAY PO
     Route: 048
  5. DEPAS [Suspect]
     Indication: INTERMITTENT EXPLOSIVE DISORDER
     Dosage: 1 MG Q DAY PO
     Route: 048
  6. LENDORMIN [Suspect]
     Indication: INTERMITTENT EXPLOSIVE DISORDER
     Dosage: 0.25 MG Q DAY PO
     Route: 048
     Dates: end: 20021111
  7. RISPERDAL [Suspect]
     Indication: INTERMITTENT EXPLOSIVE DISORDER
     Dosage: 3 MG Q DAY PO
     Route: 048
     Dates: end: 20021111

REACTIONS (5)
  - DEPRESSED LEVEL OF CONSCIOUSNESS [None]
  - DYSPHAGIA [None]
  - INTERMITTENT EXPLOSIVE DISORDER [None]
  - PNEUMONIA ASPIRATION [None]
  - PYOTHORAX [None]
